FAERS Safety Report 7959295-X (Version None)
Quarter: 2011Q4

REPORT INFORMATION
  Report Type: 
  Country: None (occurrence: None)
  Receive Date: 20111206
  Receipt Date: 20111128
  Transmission Date: 20120403
  Serious: Yes (Other)
  Sender: FDA-Public Use
  Company Number: US-SANOFI-AVENTIS-2011SA061643

PATIENT
  Age: 70 Year
  Sex: Female
  Weight: 73.93 kg

DRUGS (10)
  1. FUROSEMIDE [Concomitant]
     Indication: FLUID RETENTION
     Dates: start: 20100101
  2. SIMVASTATIN [Concomitant]
  3. GLIMEPIRIDE [Concomitant]
  4. LISINOPRIL [Concomitant]
     Indication: BLOOD PRESSURE
     Dates: start: 20080101
  5. FELODIPINE [Concomitant]
     Indication: BLOOD PRESSURE
     Dates: start: 20080101
  6. LANTUS [Suspect]
     Indication: TYPE 2 DIABETES MELLITUS
     Dosage: DOSE:15 UNIT(S)
     Route: 058
     Dates: start: 20090101
  7. METOPROLOL SUCCINATE [Concomitant]
     Dosage: 1 DAILY
     Dates: start: 20060101
  8. SOLOSTAR [Suspect]
     Indication: TYPE 2 DIABETES MELLITUS
     Dates: start: 20090101
  9. OMEPRAZOLE [Concomitant]
     Dates: start: 19950101
  10. FUROSEMIDE [Concomitant]
     Indication: BLOOD PRESSURE
     Dates: start: 20100101

REACTIONS (3)
  - CARPAL TUNNEL DECOMPRESSION [None]
  - BLOOD GLUCOSE INCREASED [None]
  - PRODUCT QUALITY ISSUE [None]
